FAERS Safety Report 7630514-2 (Version None)
Quarter: 2011Q3

REPORT INFORMATION
  Report Type: 
  Country: None (occurrence: None)
  Receive Date: 20110722
  Receipt Date: 20110708
  Transmission Date: 20111222
  Serious: Yes (Other)
  Sender: FDA-Public Use
  Company Number: IN-WATSON-2011-10727

PATIENT
  Age: 60 Year
  Sex: Female

DRUGS (1)
  1. CABERGOLINE [Suspect]
     Indication: PROLACTINOMA
     Route: 065

REACTIONS (2)
  - PULMONARY ARTERIAL HYPERTENSION [None]
  - TRICUSPID VALVE INCOMPETENCE [None]
